FAERS Safety Report 8165213-4 (Version None)
Quarter: 2012Q1

REPORT INFORMATION
  Report Type: 
  Country: None (occurrence: None)
  Receive Date: 20120227
  Receipt Date: 20120223
  Transmission Date: 20120608
  Serious: No
  Sender: FDA-Public Use
  Company Number: US-PFIZER INC-2012049366

PATIENT
  Sex: Female
  Weight: 63 kg

DRUGS (1)
  1. PRISTIQ [Suspect]
     Indication: MAJOR DEPRESSION
     Dosage: 50MG TABLET DAILY
     Route: 048
     Dates: start: 20120201

REACTIONS (2)
  - INSOMNIA [None]
  - POLLAKIURIA [None]
